FAERS Safety Report 23073064 (Version 1)
Quarter: 2023Q4

REPORT INFORMATION
  Report Type: Spontaneous
  Country: US (occurrence: US)
  Receive Date: 20231017
  Receipt Date: 20231017
  Transmission Date: 20240110
  Serious: No
  Sender: FDA-Public Use
  Company Number: US-GLAXOSMITHKLINE-USCH2023048908

PATIENT
  Age: 24 Year

DRUGS (1)
  1. ABREVA [Suspect]
     Active Substance: DOCOSANOL
     Indication: Oral herpes
     Dosage: UNK
     Dates: start: 20231009, end: 20231011

REACTIONS (2)
  - Drug ineffective [Unknown]
  - Condition aggravated [Unknown]
